FAERS Safety Report 10202714 (Version 1)
Quarter: 2014Q2

REPORT INFORMATION
  Report Type: Spontaneous
  Country: HR (occurrence: HR)
  Receive Date: 20140528
  Receipt Date: 20140528
  Transmission Date: 20141212
  Serious: Yes (Death)
  Sender: FDA-Public Use
  Company Number: HR-WATSON-2014-11289

PATIENT
  Age: 39 Year
  Sex: Female

DRUGS (6)
  1. VINCRISTINE (UNKNOWN) [Suspect]
     Indication: BURKITT^S LYMPHOMA STAGE IV
     Dosage: UNKNOWN
     Route: 065
  2. DOXORUBICIN (UNKNOWN) [Suspect]
     Indication: BURKITT^S LYMPHOMA STAGE IV
     Dosage: UNKNOWN
     Route: 065
  3. RITUXIMAB [Suspect]
     Indication: BURKITT^S LYMPHOMA STAGE IV
     Dosage: UNKNOWN
     Route: 065
  4. ETOPOSIDE (UNKNOWN) [Suspect]
     Indication: BURKITT^S LYMPHOMA STAGE IV
     Dosage: UNKNOWN
     Route: 065
  5. CYCLOPHOSPHAMIDE (UNKNOWN) [Suspect]
     Indication: BURKITT^S LYMPHOMA STAGE IV
     Dosage: UNKNOWN
     Route: 065
  6. PREDNISONE (UNKNOWN) [Suspect]
     Indication: BURKITT^S LYMPHOMA STAGE IV
     Dosage: UNKNOWN
     Route: 065

REACTIONS (2)
  - Multi-organ failure [Fatal]
  - Toxicity to various agents [Fatal]
